FAERS Safety Report 7888183-2 (Version None)
Quarter: 2011Q4

REPORT INFORMATION
  Report Type: 
  Country: None (occurrence: None)
  Receive Date: 20111101
  Receipt Date: 20111024
  Transmission Date: 20120403
  Serious: Yes (Other)
  Sender: FDA-Public Use
  Company Number: AUR-APL-2011-05554

PATIENT
  Age: 85 Year
  Sex: Female
  Weight: 160 kg

DRUGS (1)
  1. ALENDRONATE SODIUM [Suspect]
     Indication: OSTEOPOROSIS
     Dosage: (70 MG,1 WK),ORAL
     Route: 048

REACTIONS (1)
  - PAIN IN JAW [None]
